FAERS Safety Report 6961065-6 (Version None)
Quarter: 2010Q3

REPORT INFORMATION
  Report Type: 
  Country: None (occurrence: None)
  Receive Date: 20100823
  Receipt Date: 20100517
  Transmission Date: 20110219
  Serious: No
  Sender: FDA-Public Use
  Company Number: 004356

PATIENT
  Sex: Female
  Weight: 48.5 kg

DRUGS (18)
  1. CIMZIA [Suspect]
     Indication: CROHN'S DISEASE
     Dosage: (SUBCUTANEOUS) ; (SUBCUTANEOUS) ; (SUBCUTANEOUS) ; (SUBCUTANEOUS) ; (SUBCUTANEOUS) ; (SUBCUTANEOUS)
     Route: 058
     Dates: start: 20091222
  2. CIMZIA [Suspect]
     Indication: CROHN'S DISEASE
     Dosage: (SUBCUTANEOUS) ; (SUBCUTANEOUS) ; (SUBCUTANEOUS) ; (SUBCUTANEOUS) ; (SUBCUTANEOUS) ; (SUBCUTANEOUS)
     Route: 058
     Dates: start: 20100107
  3. CIMZIA [Suspect]
     Indication: CROHN'S DISEASE
     Dosage: (SUBCUTANEOUS) ; (SUBCUTANEOUS) ; (SUBCUTANEOUS) ; (SUBCUTANEOUS) ; (SUBCUTANEOUS) ; (SUBCUTANEOUS)
     Route: 058
     Dates: start: 20100204
  4. CIMZIA [Suspect]
     Indication: CROHN'S DISEASE
     Dosage: (SUBCUTANEOUS) ; (SUBCUTANEOUS) ; (SUBCUTANEOUS) ; (SUBCUTANEOUS) ; (SUBCUTANEOUS) ; (SUBCUTANEOUS)
     Route: 058
     Dates: start: 20100304
  5. CIMZIA [Suspect]
     Indication: CROHN'S DISEASE
     Dosage: (SUBCUTANEOUS) ; (SUBCUTANEOUS) ; (SUBCUTANEOUS) ; (SUBCUTANEOUS) ; (SUBCUTANEOUS) ; (SUBCUTANEOUS)
     Route: 058
     Dates: start: 20100401
  6. CIMZIA [Suspect]
     Indication: CROHN'S DISEASE
     Dosage: (SUBCUTANEOUS) ; (SUBCUTANEOUS) ; (SUBCUTANEOUS) ; (SUBCUTANEOUS) ; (SUBCUTANEOUS) ; (SUBCUTANEOUS)
     Route: 058
     Dates: start: 20100429
  7. PROTONIX /01263202/ [Concomitant]
  8. PENTASA [Concomitant]
  9. ATENOLOL [Concomitant]
  10. ACTONEL [Concomitant]
  11. VITAMIN B-12 [Concomitant]
  12. LUTEIN [Concomitant]
  13. ENTOCORT EC [Concomitant]
  14. FOLIC ACID [Concomitant]
  15. VITAMIN D [Concomitant]
  16. ASPIRIN [Concomitant]
  17. MAGNESIUM [Concomitant]
  18. MULTI-VITAMINS [Concomitant]

REACTIONS (3)
  - DYSGEUSIA [None]
  - MOTION SICKNESS [None]
  - NAUSEA [None]
